FAERS Safety Report 12061218 (Version 1)
Quarter: 2016Q1

REPORT INFORMATION
  Report Type: Spontaneous
  Country: US (occurrence: US)
  Receive Date: 20160210
  Receipt Date: 20160210
  Transmission Date: 20160526
  Serious: Yes (Other)
  Sender: FDA-Public Use
  Company Number: US-SA-2016SA022927

PATIENT
  Age: 27 Year
  Sex: Female

DRUGS (4)
  1. TECFIDERA [Concomitant]
     Active Substance: DIMETHYL FUMARATE
  2. AVONEX [Concomitant]
     Active Substance: INTERFERON BETA-1A
  3. AUBAGIO [Suspect]
     Active Substance: TERIFLUNOMIDE
     Indication: MULTIPLE SCLEROSIS
     Route: 065
  4. BETASERON [Concomitant]
     Active Substance: INTERFERON BETA-1B

REACTIONS (12)
  - Optic neuritis [Unknown]
  - Blindness unilateral [Unknown]
  - Hypoaesthesia [Unknown]
  - Dysarthria [Unknown]
  - Pupillary reflex impaired [Unknown]
  - Multiple sclerosis relapse [Unknown]
  - Fine motor skill dysfunction [Unknown]
  - Gait disturbance [Unknown]
  - Impaired driving ability [Not Recovered/Not Resolved]
  - Hypersensitivity [Unknown]
  - Tremor [Unknown]
  - Fall [Unknown]

NARRATIVE: CASE EVENT DATE: 201507
